FAERS Safety Report 9829377 (Version 1)
Quarter: 2014Q1

REPORT INFORMATION
  Report Type: Spontaneous
  Country: ES (occurrence: ES)
  Receive Date: 20140120
  Receipt Date: 20140120
  Transmission Date: 20141002
  Serious: Yes (Other)
  Sender: FDA-Public Use
  Company Number: ES-BEH-2014040093

PATIENT
  Age: 29 Year
  Sex: Female

DRUGS (12)
  1. INTRAVENOUS IMMUNOGLOBULINS [Suspect]
     Indication: ENCEPHALITIS AUTOIMMUNE
     Dosage: 400MG/KG/24 HOURS, FIVE DAYS PER CYCLE
     Route: 042
  2. INTRAVENOUS IMMUNOGLOBULINS [Suspect]
     Dosage: 400MG/KG/24 HOURS, FIVE DAYS PER CYCLE
     Route: 042
  3. INTRAVENOUS IMMUNOGLOBULINS [Suspect]
     Dosage: 400MG/KG/24 HOURS, FIVE DAYS PER CYCLE
     Route: 042
  4. ACYCLOVIR [Suspect]
     Indication: HERPES SIMPLEX MENINGOENCEPHALITIS
     Dosage: 600MG/8 HOURS
  5. LEVETIRACETAM [Suspect]
     Indication: CONVULSION
     Dosage: 2000MG/DAY
  6. LEVETIRACETAM [Suspect]
     Dosage: 3500MG/DAY
  7. CARBAMAZEPINE [Suspect]
     Indication: CONVULSION
     Dosage: 600MG/DAY
  8. CARBAMAZEPINE [Suspect]
     Dosage: 800MG/DAY
  9. PHENYTOIN [Suspect]
     Indication: CONVULSION
     Dosage: 300MG/DAY
  10. RITUXIMAB [Suspect]
     Dosage: 0.5G/WEEK
     Route: 042
  11. CYCLOPHOSPHAMIDE [Suspect]
     Dosage: 200MG/DAY FOR 5 DAYS
  12. LACOSAMIDE [Suspect]
     Dosage: 300MG/DAY

REACTIONS (3)
  - Hepatotoxicity [Unknown]
  - Abdominal pain [Unknown]
  - Drug ineffective for unapproved indication [Unknown]
